FAERS Safety Report 7745181-7 (Version None)
Quarter: 2011Q3

REPORT INFORMATION
  Report Type: 
  Country: None (occurrence: None)
  Receive Date: 20110907
  Receipt Date: 20110825
  Transmission Date: 20111222
  Serious: Yes (Death, Hospitalization)
  Sender: FDA-Public Use
  Company Number: 2011SP002901

PATIENT
  Age: 60 Year
  Sex: Male

DRUGS (2)
  1. LATUDA [Suspect]
     Indication: SCHIZOPHRENIA, PARANOID TYPE
     Dosage: 40 MG;
     Dates: start: 20110804
  2. COUMADIN [Suspect]
     Dates: end: 20110820

REACTIONS (2)
  - INTERNATIONAL NORMALISED RATIO DECREASED [None]
  - INFECTION [None]
